FAERS Safety Report 4629275-0 (Version None)
Quarter: 2005Q2

REPORT INFORMATION
  Report Type: 
  Country: None (occurrence: None)
  Receive Date: 20050407
  Receipt Date: 20050328
  Transmission Date: 20051028
  Serious: Yes (Other)
  Sender: FDA-Public Use
  Company Number: US-JNJFOC-20050307082

PATIENT
  Sex: Female
  Weight: 40.82 kg

DRUGS (15)
  1. CONCERTA [Suspect]
     Indication: ATTENTION DEFICIT/HYPERACTIVITY DISORDER
     Route: 049
  2. CALTRATE [Concomitant]
  3. WOMEN'S MULTIVITAMIN [Concomitant]
  4. WOMEN'S MULTIVITAMIN [Concomitant]
  5. WOMEN'S MULTIVITAMIN [Concomitant]
  6. WOMEN'S MULTIVITAMIN [Concomitant]
  7. WOMEN'S MULTIVITAMIN [Concomitant]
  8. WOMEN'S MULTIVITAMIN [Concomitant]
  9. WOMEN'S MULTIVITAMIN [Concomitant]
  10. WOMEN'S MULTIVITAMIN [Concomitant]
  11. PULMICORT [Concomitant]
  12. FORADIL [Concomitant]
  13. CLARITIN [Concomitant]
  14. ALBUTEROL [Concomitant]
  15. SINGULAIR [Concomitant]

REACTIONS (3)
  - HYPOAESTHESIA [None]
  - PAIN IN EXTREMITY [None]
  - SKIN DISCOLOURATION [None]
